FAERS Safety Report 4354136-4 (Version None)
Quarter: 2004Q2

REPORT INFORMATION
  Report Type: 
  Country: None (occurrence: None)
  Receive Date: 20040505
  Receipt Date: 20040505
  Transmission Date: 20050107
  Serious: Yes (Other)
  Sender: FDA-Public Use
  Company Number: None

PATIENT
  Age: 38 Year
  Sex: Female
  Weight: 76.2043 kg

DRUGS (3)
  1. CELEBREX [Suspect]
  2. RADIATION [Suspect]
  3. CHEMO [Concomitant]

REACTIONS (3)
  - CERVIX CARCINOMA RECURRENT [None]
  - FISTULA [None]
  - WEIGHT DECREASED [None]
